FAERS Safety Report 9451544 (Version 1)
Quarter: 2013Q3

REPORT INFORMATION
  Report Type: Spontaneous
  Country: IL (occurrence: IL)
  Receive Date: 20130811
  Receipt Date: 20130811
  Transmission Date: 20140515
  Serious: Yes (Hospitalization)
  Sender: FDA-Public Use
  Company Number: IL-MYLANLABS-2013S1016951

PATIENT
  Age: 53 Year
  Sex: Female

DRUGS (13)
  1. AZATHIOPRINE [Suspect]
     Indication: AUTOIMMUNE HEPATITIS
     Dosage: 100 MG/D, THEN 50MG ONCE DAILY
     Route: 065
  2. AZATHIOPRINE [Suspect]
     Indication: AUTOIMMUNE HEPATITIS
     Route: 065
  3. WARFARIN [Concomitant]
     Route: 065
  4. METFORMIN [Concomitant]
     Route: 065
  5. OMEPRAZOLE [Concomitant]
     Route: 065
  6. LOSARTAN [Concomitant]
     Route: 065
  7. INSULIN DETEMIR [Concomitant]
     Dosage: 20 UNITS ONCE DAILY
     Route: 065
  8. INSULIN ASPART [Concomitant]
     Dosage: 10 UNITS 3 TIMES DAILY
     Route: 065
  9. METOPROLOL [Concomitant]
     Route: 065
  10. SPIRONOLACTONE [Concomitant]
     Route: 065
  11. ASPIRIN [Concomitant]
     Dosage: 100MG DAILY
     Route: 065
  12. FUROSEMIDE [Concomitant]
     Route: 065
  13. LEVOTHYROXINE SODIUM [Concomitant]
     Route: 065

REACTIONS (2)
  - Pyrexia [Recovered/Resolved]
  - Chills [Recovered/Resolved]
